FAERS Safety Report 10626175 (Version 2)
Quarter: 2014Q4

REPORT INFORMATION
  Report Type: Spontaneous
  Country: JP (occurrence: JP)
  Receive Date: 20141204
  Receipt Date: 20141230
  Transmission Date: 20150529
  Serious: Yes (Hospitalization, Other)
  Sender: FDA-Public Use
  Company Number: JP-SA-2014SA165631

PATIENT
  Age: 18 Year
  Sex: Female

DRUGS (7)
  1. FUROSEMIDE. [Suspect]
     Active Substance: FUROSEMIDE
     Indication: DIURETIC THERAPY
     Route: 065
     Dates: start: 201209
  2. VINCRISTINE [Suspect]
     Active Substance: VINCRISTINE
     Indication: B PRECURSOR TYPE ACUTE LEUKAEMIA
     Route: 065
     Dates: start: 20120919
  3. PREDNISOLONE. [Suspect]
     Active Substance: PREDNISOLONE
     Indication: B PRECURSOR TYPE ACUTE LEUKAEMIA
     Route: 065
     Dates: start: 20120919
  4. BORTEZOMIB [Suspect]
     Active Substance: BORTEZOMIB
     Indication: B PRECURSOR TYPE ACUTE LEUKAEMIA
     Route: 065
     Dates: start: 20120919
  5. ASPARAGINASE [Suspect]
     Active Substance: ASPARAGINASE
     Indication: B PRECURSOR TYPE ACUTE LEUKAEMIA
     Dosage: DOSE 6000 U/M2/DAY
     Route: 065
     Dates: start: 20120919
  6. INSULIN [Concomitant]
     Active Substance: INSULIN NOS
     Dosage: CONTINUOUS INFUSION
     Dates: start: 2012
  7. I.V. SOLUTIONS [Concomitant]
     Dosage: INFUSION DRIP
     Dates: start: 2012

REACTIONS (6)
  - Ascites [Recovered/Resolved]
  - Gastrointestinal oedema [Recovered/Resolved]
  - Neutropenia [Unknown]
  - Intestinal ischaemia [Recovered/Resolved]
  - Abdominal pain [Recovered/Resolved]
  - Gastrointestinal necrosis [Recovered/Resolved]

NARRATIVE: CASE EVENT DATE: 2012
